FAERS Safety Report 23275881 (Version 1)
Quarter: 2023Q4

REPORT INFORMATION
  Report Type: Spontaneous
  Country: US (occurrence: None)
  Receive Date: 20231207
  Receipt Date: 20231207
  Transmission Date: 20240110
  Serious: No
  Sender: FDA-Public Use
  Company Number: None

PATIENT
  Sex: Female

DRUGS (1)
  1. CAPECITABINE [Suspect]
     Active Substance: CAPECITABINE
     Indication: Breast cancer female
     Dosage: FREQUENCY : TWICE A DAY;?
     Route: 048
     Dates: start: 202309

REACTIONS (10)
  - Pain in extremity [None]
  - Pain in extremity [None]
  - Peripheral swelling [None]
  - Peripheral swelling [None]
  - Gait inability [None]
  - Oral pain [None]
  - Sensitive skin [None]
  - Burning sensation [None]
  - Constipation [None]
  - Fluid retention [None]
